FAERS Safety Report 7887531-7 (Version None)
Quarter: 2011Q4

REPORT INFORMATION
  Report Type: 
  Country: None (occurrence: None)
  Receive Date: 20111103
  Receipt Date: 20111027
  Transmission Date: 20120403
  Serious: Yes (Hospitalization, Other)
  Sender: FDA-Public Use
  Company Number: US-BIOGENIDEC-2011BI036354

PATIENT
  Age: 57 Year
  Sex: Female

DRUGS (15)
  1. GALANTAMINE HYDROBROMIDE [Concomitant]
  2. OXYCODONE HCL [Concomitant]
  3. BENTYL [Concomitant]
  4. LOMOTIL [Concomitant]
  5. AMANTADINE HCL [Concomitant]
  6. PREMARIN [Concomitant]
  7. LEVOTHYROXINE SODIUM [Concomitant]
  8. AVONEX [Suspect]
     Indication: MULTIPLE SCLEROSIS
     Route: 030
     Dates: start: 20000915
  9. CYMBALTA [Concomitant]
  10. VITAMIN D [Concomitant]
  11. CLONAZEPAM [Concomitant]
  12. FENTANYL-100 [Concomitant]
  13. HYDROXYZINE [Concomitant]
  14. RAZADYNE [Concomitant]
  15. DIAZEPAM [Concomitant]

REACTIONS (7)
  - GASTRIC DISORDER [None]
  - INTESTINAL OBSTRUCTION [None]
  - SPINAL NERVE STIMULATOR IMPLANTATION [None]
  - OVERDOSE [None]
  - INCONTINENCE [None]
  - FEELING ABNORMAL [None]
  - PAIN OF SKIN [None]
